FAERS Safety Report 24608573 (Version 6)
Quarter: 2024Q4

REPORT INFORMATION
  Report Type: Spontaneous
  Country: FR (occurrence: FR)
  Receive Date: 20241112
  Receipt Date: 20241212
  Transmission Date: 20250115
  Serious: Yes (Hospitalization, Other)
  Sender: SANDOZ
  Company Number: FR-BAXTER-2024BAX026812

PATIENT
  Age: 75 Year
  Sex: Male
  Weight: 87.8 kg

DRUGS (41)
  1. ADRIACIN [Suspect]
     Active Substance: DOXORUBICIN HYDROCHLORIDE
     Indication: Richter^s syndrome
     Dosage: 50 MG/M2, C1D1, R-CHOP ON 3-WEEK CYCLE (21 DAYS) (DAY 1), FORMULATION: SOLUTION FOR INFUSION
     Route: 042
     Dates: start: 20241001, end: 20241001
  2. ADRIACIN [Suspect]
     Active Substance: DOXORUBICIN HYDROCHLORIDE
     Indication: Diffuse large B-cell lymphoma stage IV
  3. CYCLOPHOSPHAMIDE [Suspect]
     Active Substance: CYCLOPHOSPHAMIDE
     Indication: Richter^s syndrome
     Dosage: 750 MG/M2, C1D1, R-CHOP ON 3-WEEK CYCLE (21 DAYS) (DAY 1), FORMULATION: POWDER FOR SOLUTION FOR INJE
     Route: 042
     Dates: start: 20241001, end: 20241001
  4. CYCLOPHOSPHAMIDE [Suspect]
     Active Substance: CYCLOPHOSPHAMIDE
     Indication: Diffuse large B-cell lymphoma stage IV
  5. EPCORITAMAB [Suspect]
     Active Substance: EPCORITAMAB
     Indication: Richter^s syndrome
     Dosage: 0.16 MG PRIMING DOSE ON C1D1 (DUOBODY-CD3XCD20)
     Route: 058
     Dates: start: 20241001, end: 20241001
  6. EPCORITAMAB [Suspect]
     Active Substance: EPCORITAMAB
     Indication: Diffuse large B-cell lymphoma stage IV
     Dosage: 0.8 MG INTERMEDIATE DOSE ON C1D8 (DUOBODY-CD3XCD20)
     Route: 058
     Dates: start: 20241008, end: 20241008
  7. EPCORITAMAB [Suspect]
     Active Substance: EPCORITAMAB
     Dosage: (DUOBODY-CD3XCD20) (DOSAGE FORM: INJECTION, SOLUTION) (ON 08-OCT-2024, THE INTERMEDIATE DOSE 0.8 MG
     Route: 058
     Dates: start: 20241016
  8. EPCORITAMAB [Suspect]
     Active Substance: EPCORITAMAB
     Dosage: 48 MG, C2D1
     Route: 058
     Dates: start: 20241023
  9. EPCORITAMAB [Suspect]
     Active Substance: EPCORITAMAB
     Dosage: 48 MG, AT CYCLE 1 DAY 15 (C1D15)- ONWARDS, ONGOING, PRIOR TO THE EVENT ONSET OF CRS (ONSET: 17-OCT-2
     Route: 058
     Dates: start: 20241016, end: 20241023
  10. PREDNISONE [Suspect]
     Active Substance: PREDNISONE
     Indication: Richter^s syndrome
     Dosage: 100 MG, QD, R-CHOP THERAPY/D1-D5
     Route: 042
     Dates: start: 20241001
  11. PREDNISONE [Suspect]
     Active Substance: PREDNISONE
     Dosage: 100 MG/DAY, C1D1, D1-D5, R-CHOP ON 3-WEEK CYCLE (21 DAYS)
     Route: 065
     Dates: start: 20241001
  12. PREDNISONE [Suspect]
     Active Substance: PREDNISONE
     Dosage: (DOSAGE TEXT: 100 MG/DAY, C1D1, D1-D5, R-CHOP ON 3-WEEK CYCLE (21 DAYS)) (DOSAGE FORM: TABLET) 100 M
     Route: 048
     Dates: start: 20241001
  13. PREDNISONE [Suspect]
     Active Substance: PREDNISONE
     Dosage: (DOSAGE TEXT: R-CHOP THERAPY/D1-D5) 100 MG ONCE DAILY
     Route: 042
     Dates: start: 20241001
  14. PREDNISONE [Suspect]
     Active Substance: PREDNISONE
     Indication: Diffuse large B-cell lymphoma stage IV
     Dosage: UNK, R-CHOP THERAPY/D1-D5
     Route: 048
  15. PREDNISONE [Suspect]
     Active Substance: PREDNISONE
     Dosage: UNSPECIFIED DOSE, START DATE: OCT-2024
     Route: 065
  16. RITUXIMAB [Suspect]
     Active Substance: RITUXIMAB
     Indication: Richter^s syndrome
     Dosage: 375 MG/M2, C1D1, R-CHOP ON 3-WEEK CYCLE (21 DAYS) (DAY 1)
     Route: 042
     Dates: start: 20241001, end: 20241001
  17. RITUXIMAB [Suspect]
     Active Substance: RITUXIMAB
     Indication: Diffuse large B-cell lymphoma stage IV
  18. VINCRISTINE [Suspect]
     Active Substance: VINCRISTINE
     Indication: Diffuse large B-cell lymphoma stage IV
     Dosage: 1.4 MG/M2 (RECOMMENDED CAP OF 2 MG), C1D1, R-CHOP ON 3-WEEK CYCLE (21 DAYS) (DAY 1)
     Route: 042
     Dates: start: 20241023, end: 20241023
  19. VINCRISTINE [Suspect]
     Active Substance: VINCRISTINE
     Indication: Richter^s syndrome
     Dosage: 1.4 MG/M2 (RECOMMENDED CAP OF 2 MG), C1D1, R-CHOP ON 3-WEEK CYCLE (21 DAYS) (DAY 1)
     Route: 042
     Dates: start: 20241001, end: 20241001
  20. ALLOPURINOL [Concomitant]
     Active Substance: ALLOPURINOL
     Indication: Product used for unknown indication
     Dosage: ONGOING
     Route: 065
     Dates: start: 20240926
  21. BACTRIM [Concomitant]
     Active Substance: SULFAMETHOXAZOLE\TRIMETHOPRIM
     Indication: Product used for unknown indication
     Dosage: ONGOING
     Route: 065
     Dates: start: 20241001
  22. BISOPROLOL [Concomitant]
     Active Substance: BISOPROLOL
     Indication: Product used for unknown indication
     Dosage: ONGOING
     Route: 065
     Dates: start: 202102
  23. TROSPIUM CHLORIDE [Concomitant]
     Active Substance: TROSPIUM CHLORIDE
     Indication: Product used for unknown indication
     Dosage: ONGOING
     Route: 065
     Dates: start: 2022
  24. POTASSIUM CHLORIDE [Concomitant]
     Active Substance: POTASSIUM CHLORIDE
     Indication: Product used for unknown indication
     Dosage: UNK
     Route: 065
     Dates: start: 20241014, end: 20241016
  25. ELIQUIS [Concomitant]
     Active Substance: APIXABAN
     Indication: Product used for unknown indication
     Dosage: ONGOING
     Route: 065
     Dates: start: 202102
  26. FOSFOMYCIN [Concomitant]
     Active Substance: FOSFOMYCIN
     Indication: Product used for unknown indication
     Dosage: 0.8 MG INTERMEDIATE DOSE ON C1D8 (DUOBODY-CD3XCD20)
     Route: 058
     Dates: start: 20241008, end: 20241008
  27. MEROPENEM [Concomitant]
     Active Substance: MEROPENEM
     Indication: Product used for unknown indication
     Dosage: UNK
     Route: 065
     Dates: start: 20241017, end: 20241017
  28. OMEPRAZOLE [Concomitant]
     Active Substance: OMEPRAZOLE
     Indication: Product used for unknown indication
     Dosage: ONGOING
     Route: 065
     Dates: start: 1990
  29. OXYGEN [Concomitant]
     Active Substance: OXYGEN
     Indication: Product used for unknown indication
     Dosage: UNK
     Route: 065
     Dates: start: 20241016, end: 20241016
  30. ACETAMINOPHEN [Concomitant]
     Active Substance: ACETAMINOPHEN
     Dosage: 1 G
     Route: 042
     Dates: start: 20241016, end: 20241016
  31. ACETAMINOPHEN [Concomitant]
     Active Substance: ACETAMINOPHEN
     Dosage: 1 G, START TIME: AT 04:40 HRS
     Route: 065
     Dates: start: 20241001
  32. ACETAMINOPHEN [Concomitant]
     Active Substance: ACETAMINOPHEN
     Indication: Premedication
     Dosage: 1G, START TIME: AT 04:40 HRS
     Route: 042
     Dates: start: 20241001
  33. ACETAMINOPHEN [Concomitant]
     Active Substance: ACETAMINOPHEN
     Dosage: 5 MG
     Route: 042
     Dates: start: 20241001, end: 20241001
  34. ACETAMINOPHEN [Concomitant]
     Active Substance: ACETAMINOPHEN
     Dosage: 5 MG
     Route: 042
     Dates: start: 20241016, end: 20241016
  35. ACETAMINOPHEN [Concomitant]
     Active Substance: ACETAMINOPHEN
     Dosage: 1 G, START TIME: AT 10:25 HRS
     Route: 042
     Dates: start: 20241001
  36. POLARAMINE [Concomitant]
     Active Substance: DEXCHLORPHENIRAMINE MALEATE
     Indication: Premedication
     Dosage: 5.000MG
     Route: 042
     Dates: start: 20241016, end: 20241016
  37. SMECTA [Concomitant]
     Active Substance: MONTMORILLONITE
     Indication: Product used for unknown indication
     Dosage: 750 MG/M2, C2D1, R-CHOP ON 3-WEEK CYCLE (21 DAYS) (DAY 1), FORMULATION: POWDER FOR SOLUTION FOR INJE
     Route: 042
     Dates: start: 20241023, end: 20241023
  38. TAHOR [Concomitant]
     Active Substance: ATORVASTATIN CALCIUM
     Indication: Product used for unknown indication
     Dosage: ONGOING
     Route: 065
     Dates: start: 2004
  39. TOCILIZUMAB [Concomitant]
     Active Substance: TOCILIZUMAB
     Indication: Product used for unknown indication
     Dosage: UNK
     Route: 065
     Dates: start: 20241017, end: 20241017
  40. SILODOSIN [Concomitant]
     Active Substance: SILODOSIN
     Indication: Product used for unknown indication
     Dosage: ONGOING
     Route: 065
     Dates: start: 2022
  41. VALACYCLOVIR HYDROCHLORIDE [Concomitant]
     Active Substance: VALACYCLOVIR HYDROCHLORIDE
     Indication: Product used for unknown indication
     Dosage: ONGOING
     Route: 065
     Dates: start: 20241001

REACTIONS (6)
  - Cytokine release syndrome [Recovered/Resolved]
  - Cytokine release syndrome [Recovered/Resolved]
  - Pyrexia [Unknown]
  - Febrile neutropenia [Not Recovered/Not Resolved]
  - Anaemia [Recovered/Resolved]
  - Off label use [Unknown]

NARRATIVE: CASE EVENT DATE: 20241001
